FAERS Safety Report 5123922-5 (Version None)
Quarter: 2006Q3

REPORT INFORMATION
  Report Type: 
  Country: None (occurrence: None)
  Receive Date: 20060807
  Receipt Date: 20050823
  Transmission Date: 20061208
  Serious: No
  Sender: FDA-Public Use
  Company Number: 142939USA

PATIENT

DRUGS (7)
  1. METOCLOPRAMIDE [Suspect]
     Indication: CHEST PAIN
     Dosage: 5 MILLIGRAM QD ORAL
     Route: 048
     Dates: start: 19991101, end: 20010301
  2. METOCLOPRAMIDE [Suspect]
     Indication: GASTROOESOPHAGEAL REFLUX DISEASE
     Dosage: 5 MILLIGRAM QD ORAL
     Route: 048
     Dates: start: 19991101, end: 20010301
  3. METOCLOPRAMIDE [Suspect]
     Indication: CHEST PAIN
     Dosage: 10 MILLIGRAM QUID ORAL
     Route: 048
     Dates: start: 20010301, end: 20020529
  4. METOCLOPRAMIDE [Suspect]
     Indication: GASTROOESOPHAGEAL REFLUX DISEASE
     Dosage: 10 MILLIGRAM QUID ORAL
     Route: 048
     Dates: start: 20010301, end: 20020529
  5. ACIPHEX [Suspect]
     Indication: GASTROOESOPHAGEAL REFLUX DISEASE
     Dates: end: 20010301
  6. PREVACID [Suspect]
     Indication: GASTROOESOPHAGEAL REFLUX DISEASE
     Dosage: 30 MILLIGRAM QD
     Dates: start: 20010301
  7. BUSPAR [Suspect]
     Dates: end: 20020319

REACTIONS (4)
  - ABDOMINAL PAIN UPPER [None]
  - ANXIETY [None]
  - TARDIVE DYSKINESIA [None]
  - TREMOR [None]
